FAERS Safety Report 10640331 (Version 1)
Quarter: 2014Q4

REPORT INFORMATION
  Report Type: Spontaneous
  Country: US (occurrence: None)
  Receive Date: 20141208
  Receipt Date: 20141208
  Transmission Date: 20150529
  Serious: Yes (Other)
  Sender: FDA-Public Use
  Company Number: None

PATIENT
  Age: 56 Year
  Sex: Female
  Weight: 86.18 kg

DRUGS (2)
  1. BELVIQ [Suspect]
     Active Substance: LORCASERIN HYDROCHLORIDE
     Indication: WEIGHT DECREASED
     Dosage: 1  TABLET TAKEN BY MOUTH
     Route: 048
     Dates: start: 20141202, end: 20141203
  2. BELVIQ [Suspect]
     Active Substance: LORCASERIN HYDROCHLORIDE
     Indication: DEPRESSION
     Dosage: 1  TABLET TAKEN BY MOUTH
     Route: 048
     Dates: start: 20141202, end: 20141203

REACTIONS (9)
  - Photophobia [None]
  - Product quality issue [None]
  - Nausea [None]
  - Economic problem [None]
  - Headache [None]
  - Dizziness [None]
  - Disorientation [None]
  - Chills [None]
  - Pyrexia [None]

NARRATIVE: CASE EVENT DATE: 20141203
